FAERS Safety Report 9782606 (Version 3)
Quarter: 2014Q1

REPORT INFORMATION
  Report Type: Report from Study
  Country: BR (occurrence: BR)
  Receive Date: 20131226
  Receipt Date: 20140123
  Transmission Date: 20141002
  Serious: Yes (Other)
  Sender: FDA-Public Use
  Company Number: PHHY2013BR137924

PATIENT
  Sex: Male

DRUGS (7)
  1. DIOVAN [Suspect]
     Indication: HYPERTENSION
     Dosage: 160 MG, QD (IN THE MORNING)
     Route: 048
     Dates: end: 20131015
  2. DIOVAN [Suspect]
     Indication: CARDIAC DISORDER
  3. DIOVAN [Suspect]
     Indication: OFF LABEL USE
  4. DIOVAN AMLO FIX [Suspect]
     Indication: HYPERTENSION
     Dosage: 1 DF (160/5 MG), DAILY
     Route: 048
     Dates: end: 20131124
  5. PANTOPRAZOLE [Concomitant]
     Indication: GASTRIC DISORDER
     Dosage: UNK (20MG), UNK
     Dates: start: 20131209
  6. PRESSAT [Concomitant]
     Dosage: UNK (10MG), UNK
     Dates: start: 20131209
  7. ASPIRINA PREVENT [Concomitant]
     Indication: GASTRIC DISORDER
     Dosage: UNK (10MG), UNK
     Dates: start: 20131209

REACTIONS (9)
  - Pulmonary embolism [Recovering/Resolving]
  - Cardiac disorder [Recovering/Resolving]
  - Cardiac failure [Recovering/Resolving]
  - Heart valve incompetence [Recovering/Resolving]
  - Cardiac murmur [Recovering/Resolving]
  - Fall [Unknown]
  - Face injury [Unknown]
  - Fracture [Unknown]
  - Blood pressure fluctuation [Recovering/Resolving]
